FAERS Safety Report 9732065 (Version 1)
Quarter: 2013Q4

REPORT INFORMATION
  Report Type: Spontaneous
  Country: US (occurrence: US)
  Receive Date: 20131204
  Receipt Date: 20131204
  Transmission Date: 20140711
  Serious: Yes (Other)
  Sender: FDA-Public Use
  Company Number: US-SA-2013SA125641

PATIENT
  Age: 54 Year
  Sex: Female

DRUGS (4)
  1. LANTUS SOLOSTAR [Suspect]
     Dosage: DOSE:35 UNIT(S)
     Route: 051
  2. LANTUS SOLOSTAR [Suspect]
     Dosage: DOSE:35 UNIT(S)
     Route: 051
  3. SOLOSTAR [Concomitant]
  4. SOLOSTAR [Concomitant]

REACTIONS (4)
  - Foot fracture [Unknown]
  - Pain [Unknown]
  - Diabetic foot [Unknown]
  - Blood glucose increased [Unknown]
